FAERS Safety Report 6804616-4 (Version None)
Quarter: 2010Q2

REPORT INFORMATION
  Report Type: 
  Country: None (occurrence: None)
  Receive Date: 20100628
  Receipt Date: 20070426
  Transmission Date: 20101027
  Serious: No
  Sender: FDA-Public Use
  Company Number: US-PFIZER INC-2007033626

PATIENT
  Sex: Male

DRUGS (1)
  1. GEODON [Suspect]
     Dates: start: 20060101

REACTIONS (5)
  - AGITATION [None]
  - DRUG DOSE OMISSION [None]
  - FORMICATION [None]
  - INSOMNIA [None]
  - WITHDRAWAL SYNDROME [None]
